FAERS Safety Report 14746962 (Version 1)
Quarter: 2018Q2

REPORT INFORMATION
  Report Type: Spontaneous
  Country: US (occurrence: US)
  Receive Date: 20180411
  Receipt Date: 20180411
  Transmission Date: 20180711
  Serious: Yes (Other)
  Sender: FDA-Public Use
  Company Number: US-PFIZER INC-2018147028

PATIENT
  Age: 37 Year
  Sex: Male

DRUGS (3)
  1. SOMA [Suspect]
     Active Substance: CARISOPRODOL
     Dosage: UNK
  2. XANAX [Suspect]
     Active Substance: ALPRAZOLAM
     Dosage: UNK
  3. METHOCARBAMOL. [Suspect]
     Active Substance: METHOCARBAMOL
     Dosage: UNK

REACTIONS (3)
  - Myocardial infarction [Unknown]
  - Amnesia [Unknown]
  - Abnormal behaviour [Unknown]
